FAERS Safety Report 13745561 (Version 1)
Quarter: 2017Q3

REPORT INFORMATION
  Report Type: Spontaneous
  Country: US (occurrence: US)
  Receive Date: 20170711
  Receipt Date: 20170711
  Transmission Date: 20171127
  Serious: No
  Sender: FDA-Public Use
  Company Number: None

PATIENT
  Age: 81 Year
  Sex: Male

DRUGS (1)
  1. VOTRIENT [Suspect]
     Active Substance: PAZOPANIB HYDROCHLORIDE
     Dosage: 200MG 3 TABS QD PO
     Route: 048

REACTIONS (2)
  - Nasopharyngitis [None]
  - Haemoptysis [None]

NARRATIVE: CASE EVENT DATE: 20170704
